FAERS Safety Report 24388356 (Version 1)
Quarter: 2024Q4

REPORT INFORMATION
  Report Type: Spontaneous
  Country: US (occurrence: None)
  Receive Date: 20241001
  Receipt Date: 20241001
  Transmission Date: 20250114
  Serious: Yes (Disabling)
  Sender: Public
  Company Number: None

PATIENT
  Age: 47 Year
  Sex: Female
  Weight: 67.5 kg

DRUGS (6)
  1. MONOFERRIC [Suspect]
     Active Substance: FERRIC DERISOMALTOSE
     Indication: Iron deficiency anaemia
     Dosage: OTHER QUANTITY : 1 IV INFUSION;?OTHER FREQUENCY : 1 IV IRON DOSE;?
     Route: 042
     Dates: start: 20240904, end: 20240904
  2. SINGULAIR [Concomitant]
  3. ZOLOFT [Concomitant]
     Active Substance: SERTRALINE HYDROCHLORIDE
  4. Zyrtec [Concomitant]
  5. PEPCID [Concomitant]
     Active Substance: FAMOTIDINE
  6. ASPIRIN [Concomitant]
     Active Substance: ASPIRIN

REACTIONS (8)
  - Urticaria [None]
  - Rash [None]
  - Pruritus [None]
  - Skin warm [None]
  - Pain of skin [None]
  - Hypotension [None]
  - Dizziness [None]
  - Adverse drug reaction [None]

NARRATIVE: CASE EVENT DATE: 20240904
